FAERS Safety Report 23288173 (Version 2)
Quarter: 2024Q1

REPORT INFORMATION
  Report Type: Spontaneous
  Country: US (occurrence: US)
  Receive Date: 20231212
  Receipt Date: 20240104
  Transmission Date: 20240409
  Serious: Yes (Death)
  Sender: FDA-Public Use
  Company Number: US-PFIZER INC-PV202200091896

PATIENT
  Age: 91 Year
  Sex: Female

DRUGS (1)
  1. IBRANCE [Suspect]
     Active Substance: PALBOCICLIB
     Dosage: 125 MG, DAILY AS PRESCRIBED, ON AND OFF LIKE SHE WAS SUPPOSED TO

REACTIONS (5)
  - Pneumonia [Fatal]
  - Weight decreased [Unknown]
  - Taste disorder [Unknown]
  - Gastrointestinal disorder [Unknown]
  - Product use complaint [Unknown]
